FAERS Safety Report 10549958 (Version 2)
Quarter: 2015Q1

REPORT INFORMATION
  Report Type: Spontaneous
  Country: US (occurrence: None)
  Receive Date: 20141020
  Receipt Date: 20150120
  Transmission Date: 20150720
  Serious: No
  Sender: FDA-Public Use
  Company Number: AEGR000752

PATIENT
  Age: 59 Year
  Sex: Female
  Weight: 90.2 kg

DRUGS (1)
  1. JUXTAPID [Suspect]
     Active Substance: LOMITAPIDE MESYLATE
     Indication: TYPE IIA HYPERLIPIDAEMIA
     Route: 048
     Dates: start: 20140915, end: 20140924

REACTIONS (9)
  - Headache [None]
  - Insomnia [None]
  - Diarrhoea [None]
  - Nausea [None]
  - Breast pain [None]
  - Back pain [None]
  - Pain [None]
  - Weight decreased [None]
  - Abdominal distension [None]

NARRATIVE: CASE EVENT DATE: 201409
